FAERS Safety Report 22006912 (Version 2)
Quarter: 2023Q1

REPORT INFORMATION
  Report Type: Report from Study
  Country: NL (occurrence: NL)
  Receive Date: 20230217
  Receipt Date: 20230228
  Transmission Date: 20230418
  Serious: Yes (Other)
  Sender: FDA-Public Use
  Company Number: NL-ALNYLAM PHARMACEUTICALS, INC.-ALN-2023-000617

PATIENT

DRUGS (7)
  1. OXLUMO [Suspect]
     Active Substance: LUMASIRAN
     Indication: Primary hyperoxaluria
     Dosage: UNK (3 MG/KG/3M, 1 VIAL)
     Route: 058
     Dates: start: 20221213
  2. OXLUMO [Suspect]
     Active Substance: LUMASIRAN
     Dosage: UNK (6 MG/KG/3M; 2 VIAL)
     Route: 058
     Dates: start: 20220921, end: 20220921
  3. OXLUMO [Suspect]
     Active Substance: LUMASIRAN
     Dosage: UNK (6MG/KG/3M)
     Route: 058
     Dates: start: 20210526, end: 20210526
  4. NEDOSIRAN SODIUM [Suspect]
     Active Substance: NEDOSIRAN SODIUM
     Indication: Primary hyperoxaluria
     Dosage: 2.5 (3.5 MG/KG/M)
     Route: 065
     Dates: start: 20221004, end: 20221004
  5. NEDOSIRAN SODIUM [Suspect]
     Active Substance: NEDOSIRAN SODIUM
     Dosage: UNK (2.5 MG/KG/M)
     Route: 058
     Dates: start: 20220630, end: 20220630
  6. NEDOSIRAN SODIUM [Suspect]
     Active Substance: NEDOSIRAN SODIUM
     Dosage: UNK (2.5 MG/KG/M)
     Route: 058
     Dates: start: 20220901, end: 20220901
  7. NEDOSIRAN SODIUM [Suspect]
     Active Substance: NEDOSIRAN SODIUM
     Dosage: UNK (3.5 MG/KG/M)
     Route: 058
     Dates: start: 20230209, end: 20230209

REACTIONS (1)
  - Injection site atrophy [Recovered/Resolved]

NARRATIVE: CASE EVENT DATE: 20221026
